FAERS Safety Report 18665352 (Version 1)
Quarter: 2020Q4

REPORT INFORMATION
  Report Type: Spontaneous
  Country: US (occurrence: US)
  Receive Date: 20201225
  Receipt Date: 20201225
  Transmission Date: 20210114
  Serious: Yes (Hospitalization)
  Sender: FDA-Public Use
  Company Number: US-TEVA-2020-US-1861667

PATIENT
  Age: 91 Year
  Sex: Female

DRUGS (13)
  1. POLYE!H GLYC [Concomitant]
     Route: 065
  2. FLUCONAZOLE. [Concomitant]
     Active Substance: FLUCONAZOLE
     Route: 065
  3. PREDNISONE. [Concomitant]
     Active Substance: PREDNISONE
     Route: 065
  4. PENTOXIFYLLI [Concomitant]
     Route: 065
  5. MEGESLROL AC [Concomitant]
     Route: 065
  6. FEBUXOSTA [Concomitant]
     Route: 065
  7. COPAXONE [Suspect]
     Active Substance: GLATIRAMER ACETATE
     Indication: MULTIPLE SCLEROSIS
     Dosage: 17.1429 MILLIGRAM/MILLILITERS DAILY; EVERY MONDAY, WEDNESDAY AND FRIDAY
     Route: 058
     Dates: start: 20180119
  8. POT CITRATE [Concomitant]
     Active Substance: POTASSIUM CITRATE
     Route: 065
  9. LINEZOLID. [Concomitant]
     Active Substance: LINEZOLID
     Route: 065
  10. CIPRO [Concomitant]
     Active Substance: CIPROFLOXACIN HYDROCHLORIDE
  11. CEFUROXIME. [Concomitant]
     Active Substance: CEFUROXIME
     Route: 065
  12. PAROXETINE. [Concomitant]
     Active Substance: PAROXETINE
     Route: 065
  13. DIAZEPAM. [Concomitant]
     Active Substance: DIAZEPAM

REACTIONS (1)
  - Urinary tract infection [Recovered/Resolved]

NARRATIVE: CASE EVENT DATE: 20201210
